FAERS Safety Report 20737278 (Version 2)
Quarter: 2022Q3

REPORT INFORMATION
  Report Type: Spontaneous
  Country: US (occurrence: US)
  Receive Date: 20220421
  Receipt Date: 20220721
  Transmission Date: 20221027
  Serious: Yes (Hospitalization, Other)
  Sender: FDA-Public Use
  Company Number: US-Vifor (International) Inc.-VIT-2022-02660

PATIENT
  Age: 62 Year
  Sex: Male

DRUGS (12)
  1. VELTASSA [Suspect]
     Active Substance: PATIROMER
     Indication: Chronic kidney disease
     Dosage: DISSOLVE 1 PACKET IN WATER AND DRINK THREE TIMES DAILY. TAKE OTHER MEDICATIONS AT LEAST 3 HOURS BEFO
     Route: 048
     Dates: start: 20210126
  2. ASPIRIN [Concomitant]
     Active Substance: ASPIRIN
  3. CEPHALEXIN [Concomitant]
     Active Substance: CEPHALEXIN
  4. COENZYME Q10 [Concomitant]
     Active Substance: DIETARY SUPPLEMENT\UBIDECARENONE
     Dosage: 10 CAPSULES
  5. ERGOCAL [Concomitant]
     Dosage: 2500 UNIT
  6. HYDRALAZINE [Concomitant]
     Active Substance: HYDRALAZINE HYDROCHLORIDE
  7. IRON [Concomitant]
     Active Substance: IRON
  8. KP VITAMIN D [Concomitant]
  9. METOPROLOL [Concomitant]
     Active Substance: METOPROLOL
  10. REPAGLINIDE [Concomitant]
     Active Substance: REPAGLINIDE
  11. ROSUVASTATIN [Concomitant]
     Active Substance: ROSUVASTATIN
  12. ULORIC [Concomitant]
     Active Substance: FEBUXOSTAT

REACTIONS (1)
  - End stage renal disease [Not Recovered/Not Resolved]
